FAERS Safety Report 8829949 (Version 1)
Quarter: 2012Q4

REPORT INFORMATION
  Report Type: 
  Country: JP (occurrence: JP)
  Receive Date: 20121008
  Receipt Date: 20121008
  Transmission Date: 20130627
  Serious: Yes (Other)
  Sender: FDA-Public Use
  Company Number: JP-PFIZER INC-2012243121

PATIENT
  Age: 43 Year
  Sex: Female

DRUGS (1)
  1. SALAZOPYRIN [Suspect]
     Route: 054

REACTIONS (1)
  - Urinary retention [Unknown]
